FAERS Safety Report 9231598 (Version 1)
Quarter: 2013Q1

REPORT INFORMATION
  Report Type: Spontaneous
  Country: US (occurrence: None)
  Receive Date: 20121031
  Receipt Date: 20121031
  Transmission Date: 20140127
  Serious: Yes (Hospitalization, Other)
  Sender: FDA-Public Use
  Company Number: PHEH2012US012796

PATIENT
  Age: 70 Year
  Sex: Female

DRUGS (4)
  1. GILENYA (FTY) CAPSULE, 0.5MG [Suspect]
     Indication: MULTIPLE SCLEROSIS
     Route: 048
     Dates: start: 20120626, end: 20120627
  2. TEGRETOL-SLOW RELEASE (CARBAMAZEPINE) [Concomitant]
  3. VICODIN (HYDROCODONE BITARTRATE, PARACETAMOL) [Concomitant]
  4. NEURONTIN (GABAPENTIN) [Concomitant]

REACTIONS (2)
  - Atrioventricular block first degree [None]
  - Bradycardia [None]
